FAERS Safety Report 25219215 (Version 1)
Quarter: 2025Q2

REPORT INFORMATION
  Report Type: Spontaneous
  Country: DE (occurrence: DE)
  Receive Date: 20250421
  Receipt Date: 20250421
  Transmission Date: 20250716
  Serious: Yes (Other)
  Sender: IPSEN BIOPHARMACEUTICALS, INC.
  Company Number: DE-IPSEN Group, Research and Development-2025-08852

PATIENT

DRUGS (1)
  1. ODEVIXIBAT [Suspect]
     Active Substance: ODEVIXIBAT
     Indication: Progressive familial intrahepatic cholestasis
     Route: 065

REACTIONS (2)
  - Liver transplant [Unknown]
  - Diarrhoea [Unknown]
